FAERS Safety Report 6088015-1 (Version None)
Quarter: 2009Q1

REPORT INFORMATION
  Report Type: 
  Country: None (occurrence: None)
  Receive Date: 20090219
  Receipt Date: 20090212
  Transmission Date: 20090719
  Serious: Yes (Life-Threatening, Hospitalization)
  Sender: FDA-Public Use
  Company Number: US025318

PATIENT
  Age: 62 Year
  Sex: Female
  Weight: 162 kg

DRUGS (4)
  1. TREANDA [Suspect]
     Indication: CHRONIC LYMPHOCYTIC LEUKAEMIA
     Dosage: 91MG DOSE REDUCED - 50 MG/M2 INTRAVENOUS
     Route: 042
     Dates: start: 20081218, end: 20081219
  2. SYNTHROID [Concomitant]
  3. LEXAPRO [Concomitant]
  4. OXYCONTIN [Concomitant]

REACTIONS (5)
  - ANAEMIA HAEMOLYTIC AUTOIMMUNE [None]
  - CHOLECYSTITIS ACUTE [None]
  - DIARRHOEA [None]
  - DYSPNOEA EXERTIONAL [None]
  - HYPOTENSION [None]
